FAERS Safety Report 7579988-6 (Version None)
Quarter: 2011Q2

REPORT INFORMATION
  Report Type: 
  Country: None (occurrence: None)
  Receive Date: 20110629
  Receipt Date: 20110620
  Transmission Date: 20111010
  Serious: Yes (Death)
  Sender: FDA-Public Use
  Company Number: MX-SANOFI-AVENTIS-2011SA035744

PATIENT
  Age: 43 Year
  Sex: Female

DRUGS (4)
  1. ALL OTHER THERAPEUTIC PRODUCTS [Concomitant]
  2. DRONEDARONE HCL [Suspect]
     Indication: ATRIAL FIBRILLATION
     Route: 048
     Dates: start: 20100901, end: 20110320
  3. DRONEDARONE HCL [Suspect]
     Route: 048
     Dates: start: 20100901, end: 20110320
  4. ALL OTHER THERAPEUTIC PRODUCTS [Concomitant]
     Dates: start: 20090101, end: 20110320

REACTIONS (2)
  - UNDERDOSE [None]
  - CARDIAC ARREST [None]
